FAERS Safety Report 10921335 (Version 1)
Quarter: 2015Q1

REPORT INFORMATION
  Report Type: Spontaneous
  Country: US (occurrence: US)
  Receive Date: 20150317
  Receipt Date: 20150317
  Transmission Date: 20150721
  Serious: Yes (Hospitalization)
  Sender: FDA-Public Use
  Company Number: US-SA-2015SA031642

PATIENT
  Age: 10 Year
  Sex: Male
  Weight: 39.2 kg

DRUGS (9)
  1. NORMAL SALINE [Concomitant]
     Active Substance: SODIUM CHLORIDE
  2. LMX 5 [Concomitant]
  3. SODIUM CHLORIDE. [Concomitant]
     Active Substance: SODIUM CHLORIDE
  4. EPIPEN [Concomitant]
     Active Substance: EPINEPHRINE
  5. CEREZYME [Suspect]
     Active Substance: IMIGLUCERASE
     Indication: LIPIDOSIS
     Dosage: DOSE:61.22 UNIT(S)/KILOGRAM BODYWEIGHT
     Route: 042
     Dates: start: 20131119
  6. DIPHENHYDRAMINE [Concomitant]
     Active Substance: DIPHENHYDRAMINE
  7. LIDOCAINE. [Concomitant]
     Active Substance: LIDOCAINE
  8. HUMALOG [Concomitant]
     Active Substance: INSULIN LISPRO
  9. LANTUS [Concomitant]
     Active Substance: INSULIN GLARGINE

REACTIONS (1)
  - Blood glucose increased [Recovered/Resolved]

NARRATIVE: CASE EVENT DATE: 20150206
